FAERS Safety Report 5409644-1 (Version None)
Quarter: 2007Q3

REPORT INFORMATION
  Report Type: 
  Country: None (occurrence: None)
  Receive Date: 20070807
  Receipt Date: 20070807
  Transmission Date: 20080115
  Serious: Yes (Hospitalization)
  Sender: FDA-Public Use
  Company Number: None

PATIENT
  Age: 46 Year
  Sex: Female

DRUGS (7)
  1. GEODON [Suspect]
  2. NORVASC [Concomitant]
  3. NEXIUM [Concomitant]
  4. PRAVACHOL [Concomitant]
  5. NASONEX SPRAY [Concomitant]
  6. CLARINEX [Concomitant]
  7. REQUIP [Concomitant]

REACTIONS (1)
  - PARKINSONISM [None]
